FAERS Safety Report 14095859 (Version 2)
Quarter: 2017Q4

REPORT INFORMATION
  Report Type: Spontaneous
  Country: SK (occurrence: SK)
  Receive Date: 20171017
  Receipt Date: 20171206
  Transmission Date: 20180321
  Serious: Yes (Death)
  Sender: FDA-Public Use
  Company Number: SK-ROCHE-2009302

PATIENT
  Age: 95 Year
  Sex: Female
  Weight: 46 kg

DRUGS (1)
  1. ACTILYSE [Suspect]
     Active Substance: ALTEPLASE
     Indication: ISCHAEMIC STROKE
     Route: 042
     Dates: start: 20170411, end: 20170411

REACTIONS (1)
  - Haemorrhage [Fatal]

NARRATIVE: CASE EVENT DATE: 20170412
